FAERS Safety Report 5961622-X (Version None)
Quarter: 2008Q4

REPORT INFORMATION
  Report Type: 
  Country: None (occurrence: None)
  Receive Date: 20081121
  Receipt Date: 20081113
  Transmission Date: 20090506
  Serious: Yes (Other)
  Sender: FDA-Public Use
  Company Number: US-WATSON-2008-06743

PATIENT
  Sex: Male

DRUGS (2)
  1. TRIAMCINOLONE ACETONIDE [Suspect]
     Indication: ARTHRITIS BACTERIAL
     Dosage: UNK
     Route: 013
  2. TRIAMCINOLONE ACETONIDE [Suspect]
     Indication: PYODERMA GANGRENOSUM

REACTIONS (1)
  - RETINAL ARTERY OCCLUSION [None]
